FAERS Safety Report 11915639 (Version 1)
Quarter: 2016Q1

REPORT INFORMATION
  Report Type: Spontaneous
  Country: GB (occurrence: GB)
  Receive Date: 20160114
  Receipt Date: 20160114
  Transmission Date: 20160526
  Serious: Yes (Other)
  Sender: FDA-Public Use
  Company Number: GB-SUN PHARMACEUTICAL INDUSTRIES LTD-2015RR-109659

PATIENT

DRUGS (3)
  1. TRANEXAMIC ACID. [Concomitant]
     Active Substance: TRANEXAMIC ACID
     Indication: PRODUCT USED FOR UNKNOWN INDICATION
     Route: 065
  2. NAPROXEN. [Concomitant]
     Active Substance: NAPROXEN
     Indication: PRODUCT USED FOR UNKNOWN INDICATION
     Dosage: TWICE DAILY
     Route: 065
  3. DIHYDROCODEINE [Suspect]
     Active Substance: DIHYDROCODEINE
     Indication: MUSCLE RUPTURE
     Dosage: 30 MG, 1 EVERY 3-6 HOURS
     Route: 048
     Dates: start: 20151221, end: 20151222

REACTIONS (3)
  - Diarrhoea [Not Recovered/Not Resolved]
  - Constipation [Not Recovered/Not Resolved]
  - Abdominal pain upper [Not Recovered/Not Resolved]

NARRATIVE: CASE EVENT DATE: 20151222
